FAERS Safety Report 12093739 (Version 2)
Quarter: 2017Q3

REPORT INFORMATION
  Report Type: Spontaneous
  Country: US (occurrence: US)
  Receive Date: 20160219
  Receipt Date: 20170911
  Transmission Date: 20171127
  Serious: Yes (Death, Other)
  Sender: FDA-Public Use
  Company Number: US-PFIZER INC-2016091963

PATIENT
  Age: 84 Year
  Sex: Female
  Weight: 92 kg

DRUGS (19)
  1. IBRANCE [Suspect]
     Active Substance: PALBOCICLIB
     Indication: BREAST CANCER METASTATIC
     Dosage: 100 MG, DAILY
     Route: 048
     Dates: start: 20150902, end: 20160115
  2. ATENOLOL. [Concomitant]
     Active Substance: ATENOLOL
     Dosage: 75 MG, UNK
     Dates: end: 201706
  3. CALTRATE [Concomitant]
     Active Substance: CALCIUM CARBONATE
     Dosage: 2 DF, DAILY
     Route: 048
     Dates: end: 201706
  4. VASOTEC [Concomitant]
     Active Substance: ENALAPRIL MALEATE
     Dosage: 5 MG, UNK
     Dates: end: 201706
  5. SYNTHROID [Concomitant]
     Active Substance: LEVOTHYROXINE SODIUM
     Dosage: 25 UG, DAILY
     Dates: end: 201706
  6. LETROZOLE. [Suspect]
     Active Substance: LETROZOLE
     Dosage: 2.5 MG, 1X/DAY
     Route: 048
     Dates: end: 201706
  7. INSULIN [Concomitant]
     Active Substance: INSULIN NOS
     Dosage: 10 IU, DAILY
     Dates: end: 201706
  8. NITROSTAT [Concomitant]
     Active Substance: NITROGLYCERIN
     Dosage: UNK, AS NEEDED (PRN)
     Dates: end: 201706
  9. PROTONIX [Concomitant]
     Active Substance: PANTOPRAZOLE SODIUM
     Dosage: 40 MG, DAILY
     Dates: end: 201706
  10. VITAMIN D [Concomitant]
     Active Substance: CHOLECALCIFEROL
     Dosage: 5000 IU, ONCE EVERY 30 DAYS
     Dates: end: 201706
  11. LASIX [Concomitant]
     Active Substance: FUROSEMIDE
     Dosage: 40 MG, DAILY
     Dates: end: 201706
  12. HYDROCODONE [Concomitant]
     Active Substance: HYDROCODONE
     Dosage: 1 TABLET,  EVERY 6 HOURS, AS NEEDED (PNR)
     Route: 048
     Dates: end: 201706
  13. AMPHETAMINE [Concomitant]
     Active Substance: AMPHETAMINE
     Dosage: 1 TABLET EVERY 6 HOURS, AS NEEDED (PRN)
     Route: 048
     Dates: end: 201706
  14. LANTUS [Concomitant]
     Active Substance: INSULIN GLARGINE
     Dosage: UNK
     Dates: end: 201706
  15. ZOFRAN [Concomitant]
     Active Substance: ONDANSETRON HYDROCHLORIDE
     Dosage: 8 MG, EVERY 8 HOURS, AS NEEDED (PRN)
     Dates: end: 201706
  16. IBRANCE [Suspect]
     Active Substance: PALBOCICLIB
     Dosage: 75 MG, CYCLIC (PER DAY FOR 2 WEEKS AND 2 WEEKS OFF)
     Route: 048
     Dates: end: 201706
  17. LETROZOLE. [Suspect]
     Active Substance: LETROZOLE
     Indication: BREAST CANCER METASTATIC
     Dosage: 2.5 MG, 1X/DAY
     Route: 048
     Dates: start: 20150902, end: 20160115
  18. ASPIRIN. [Concomitant]
     Active Substance: ASPIRIN
     Dosage: 325 MG, DAILY
     Dates: end: 201706
  19. HUMALOG [Concomitant]
     Active Substance: INSULIN LISPRO
     Dosage: UNK
     Dates: end: 201706

REACTIONS (8)
  - Meningioma [Unknown]
  - Death [Fatal]
  - Urinary tract infection [Unknown]
  - Asthenia [Recovering/Resolving]
  - Second primary malignancy [Unknown]
  - Localised infection [Unknown]
  - Hypotension [Unknown]
  - Cardiovascular disorder [Unknown]

NARRATIVE: CASE EVENT DATE: 201512
